FAERS Safety Report 9325104 (Version 2)
Quarter: 2013Q3

REPORT INFORMATION
  Report Type: Spontaneous
  Country: US (occurrence: US)
  Receive Date: 20130603
  Receipt Date: 20130828
  Transmission Date: 20140515
  Serious: Yes (Hospitalization, Other)
  Sender: FDA-Public Use
  Company Number: US-B.I. PHARMACEUTICALS,INC./RIDGEFIELD-2013-BI-14965BP

PATIENT
  Sex: Female
  Weight: 61 kg

DRUGS (9)
  1. MIRAPEX [Suspect]
     Indication: PARKINSON^S DISEASE
     Dosage: 4.5 MG
     Route: 048
     Dates: start: 2011, end: 2012
  2. MIRAPEX [Suspect]
     Dosage: 4.5 MG
     Route: 048
     Dates: start: 2012, end: 20130523
  3. MIRAPEX [Suspect]
     Dosage: 3 MG
     Route: 048
     Dates: start: 20130524
  4. MIRAPEX [Suspect]
     Dosage: 4.5 MG
     Route: 048
  5. MIRAPEX [Suspect]
     Indication: PARKINSON^S DISEASE
     Dosage: 4.5 MG
     Route: 048
     Dates: start: 199707, end: 2011
  6. SINEMET [Concomitant]
     Indication: PARKINSON^S DISEASE
     Dosage: STRENGTH: 25/100; DAILY DOSE: 150/600
     Route: 048
  7. SINEMET [Concomitant]
     Dosage: STRENGTH: 25/100;
     Route: 048
  8. AZILECT [Concomitant]
     Dosage: 1 MG
     Route: 048
  9. ATIVAN [Concomitant]
     Route: 048

REACTIONS (12)
  - Femur fracture [Recovered/Resolved]
  - Osteonecrosis [Recovered/Resolved with Sequelae]
  - Localised infection [Recovered/Resolved]
  - Arterial occlusive disease [Recovered/Resolved with Sequelae]
  - Pneumonia aspiration [Recovered/Resolved]
  - Drug administration error [Not Recovered/Not Resolved]
  - Drug ineffective [Recovered/Resolved]
  - Dyskinesia [Not Recovered/Not Resolved]
  - Fall [Recovered/Resolved]
  - Parkinson^s disease [Not Recovered/Not Resolved]
  - Skin ulcer [Recovered/Resolved]
  - Joint swelling [Recovered/Resolved]
